FAERS Safety Report 8310305 (Version 2)
Quarter: 2012Q4

REPORT INFORMATION
  Report Type: 
  Country: US (occurrence: US)
  Receive Date: 20111223
  Receipt Date: 20121129
  Transmission Date: 20130627
  Serious: Yes (Hospitalization, Other)
  Sender: FDA-Public Use
  Company Number: US-ROCHE-1023962

PATIENT
  Age: 25 None
  Sex: Male
  Weight: 77.18 kg

DRUGS (2)
  1. ACCUTANE [Suspect]
     Indication: ACNE
     Route: 065
     Dates: start: 1986, end: 1987
  2. ACCUTANE [Suspect]
     Route: 065
     Dates: end: 1988

REACTIONS (6)
  - Gastrointestinal haemorrhage [Recovering/Resolving]
  - Inflammatory bowel disease [Unknown]
  - Colitis ulcerative [Unknown]
  - Crohn^s disease [Unknown]
  - Depression [Not Recovered/Not Resolved]
  - Injury [Unknown]
